FAERS Safety Report 14325481 (Version 7)
Quarter: 2021Q4

REPORT INFORMATION
  Report Type: Spontaneous
  Country: JP (occurrence: JP)
  Receive Date: 20171226
  Receipt Date: 20211201
  Transmission Date: 20220303
  Serious: Yes (Life-Threatening, Hospitalization, Other)
  Sender: FDA-Public Use
  Company Number: JP-SANOFI-2017SA259448

PATIENT
  Age: 1 Year
  Sex: Female
  Weight: 8 kg

DRUGS (33)
  1. SABRIL [Suspect]
     Active Substance: VIGABATRIN
     Indication: Infantile spasms
     Dosage: 200 MG, BID
     Route: 048
     Dates: start: 20161216, end: 20161219
  2. SABRIL [Suspect]
     Active Substance: VIGABATRIN
     Dosage: 300 MG, BID
     Route: 048
     Dates: start: 20161219, end: 20161224
  3. SABRIL [Suspect]
     Active Substance: VIGABATRIN
     Dosage: 400 MG, BID
     Route: 048
     Dates: start: 20161224, end: 20180328
  4. SABRIL [Suspect]
     Active Substance: VIGABATRIN
     Dosage: 500 MG, BID
     Route: 048
     Dates: start: 20180329
  5. SABRIL [Suspect]
     Active Substance: VIGABATRIN
     Dosage: 500 MG, BID
     Route: 048
     Dates: start: 20191211, end: 20210317
  6. SABRIL [Suspect]
     Active Substance: VIGABATRIN
     Dosage: 375 MG, BID
     Route: 048
     Dates: start: 20210318, end: 20210519
  7. SABRIL [Suspect]
     Active Substance: VIGABATRIN
     Dosage: 250 MG, BID
     Route: 048
     Dates: start: 20210520, end: 20210721
  8. SABRIL [Suspect]
     Active Substance: VIGABATRIN
     Dosage: 125 MG, BID
     Route: 048
     Dates: start: 20210722, end: 20210927
  9. EPINASTINE [EPINASTINE HYDROCHLORIDE] [Concomitant]
     Indication: Product used for unknown indication
     Dosage: 4 MG/DAY
     Route: 048
     Dates: start: 20190916
  10. VALPROATE SODIUM [Concomitant]
     Active Substance: VALPROATE SODIUM
     Indication: Infantile spasms
     Dosage: 120 MG, QD
     Route: 048
     Dates: end: 20181226
  11. VALPROATE SODIUM [Concomitant]
     Active Substance: VALPROATE SODIUM
     Dosage: 150 MG, QD
     Route: 048
     Dates: end: 20181228
  12. LIORESAL [Concomitant]
     Active Substance: BACLOFEN
     Indication: Product used for unknown indication
     Dosage: 3 MG, QD
     Route: 048
  13. LIORESAL [Concomitant]
     Active Substance: BACLOFEN
     Dosage: 7.5 MG/DAY
     Route: 048
     Dates: start: 20191211
  14. DANTRIUM [Concomitant]
     Active Substance: DANTROLENE SODIUM
     Indication: Product used for unknown indication
     Dosage: 25 MG, QD
     Route: 048
  15. DANTRIUM [Concomitant]
     Active Substance: DANTROLENE SODIUM
     Dosage: 25 MG, QD
     Route: 048
     Dates: start: 20191211
  16. MOSAPRIDE CITRATE [Concomitant]
     Active Substance: MOSAPRIDE CITRATE
     Indication: Product used for unknown indication
     Dosage: 2 MG, QD
     Route: 048
  17. LANSOPRAZOLE [Concomitant]
     Active Substance: LANSOPRAZOLE
     Indication: Product used for unknown indication
     Dosage: 45 MG, QD
     Route: 048
  18. PULMICORT TURBUHALER [Concomitant]
     Active Substance: BUDESONIDE
     Indication: Product used for unknown indication
     Dosage: 0.5 MG, QD
     Route: 055
  19. SODIUM PICOSULFATE [Concomitant]
     Active Substance: SODIUM PICOSULFATE
     Indication: Prophylaxis
     Dosage: 5 DF
     Route: 048
     Dates: start: 20170310, end: 20170310
  20. SODIUM PICOSULFATE [Concomitant]
     Active Substance: SODIUM PICOSULFATE
     Indication: Investigation
  21. FYCOMPA [Concomitant]
     Active Substance: PERAMPANEL
     Indication: Infantile spasms
     Dosage: 0.3 MG, QD
     Route: 048
     Dates: start: 20180327
  22. PRANLUKAST [Concomitant]
     Active Substance: PRANLUKAST
     Indication: Product used for unknown indication
     Dosage: 60 MG, QD
     Route: 048
     Dates: start: 20190204
  23. PERAMPANEL [Concomitant]
     Active Substance: PERAMPANEL
     Indication: Infantile spasms
     Dosage: 0.3 MG/DAY
     Route: 048
     Dates: start: 20191211, end: 20191226
  24. PERAMPANEL [Concomitant]
     Active Substance: PERAMPANEL
     Dosage: 0.3 MG/DAY
     Route: 048
     Dates: start: 20191227
  25. ACETYLCYSTEINE [Concomitant]
     Active Substance: ACETYLCYSTEINE
     Indication: Product used for unknown indication
     Dosage: 2 ML/DAY
     Route: 055
  26. PRANLUKAST [Concomitant]
     Active Substance: PRANLUKAST
     Indication: Product used for unknown indication
     Dosage: 60 MG/DAY
     Route: 048
  27. CARBOCYSTEINE [Concomitant]
     Active Substance: CARBOCYSTEINE
     Indication: Product used for unknown indication
     Dosage: 450 MG/DAY
     Route: 048
  28. AMBROXOL HYDROCHLORIDE [Concomitant]
     Active Substance: AMBROXOL HYDROCHLORIDE
     Indication: Product used for unknown indication
     Dosage: 13.5 MG/DAY
     Route: 048
  29. CLARITHROMYCIN [Concomitant]
     Active Substance: CLARITHROMYCIN
     Indication: Product used for unknown indication
     Dosage: 40 MG/DAY
     Route: 048
  30. ZINC [Concomitant]
     Active Substance: ZINC
     Indication: Product used for unknown indication
     Dosage: 7.5 MG/DAY
     Route: 048
  31. SOLITA T GRANULES NO.3 [Concomitant]
     Indication: Product used for unknown indication
     Dosage: 16 MG/DAY
     Route: 048
  32. AMINO ACIDS\DEXTROSE\ELECTROLYTES NOS\SOYBEAN OIL\VITAMINS [Concomitant]
     Active Substance: AMINO ACIDS\DEXTROSE\ELECTROLYTES NOS\SOYBEAN OIL\VITAMINS
     Indication: Product used for unknown indication
     Dosage: 600 ML/DAY
     Route: 048
  33. PROCATEROL HYDROCHLORIDE [Concomitant]
     Active Substance: PROCATEROL HYDROCHLORIDE
     Indication: Product used for unknown indication
     Dosage: 0.6 ML/DAY
     Route: 055

REACTIONS (5)
  - Respiratory failure [Recovered/Resolved]
  - Asphyxia [Recovered/Resolved]
  - Pneumonia [Recovering/Resolving]
  - Upper respiratory tract inflammation [Recovering/Resolving]
  - Asthma [Recovered/Resolved]

NARRATIVE: CASE EVENT DATE: 20170220
